FAERS Safety Report 24055187 (Version 1)
Quarter: 2024Q3

REPORT INFORMATION
  Report Type: Spontaneous
  Country: CN (occurrence: CN)
  Receive Date: 20240705
  Receipt Date: 20240705
  Transmission Date: 20241017
  Serious: Yes (Hospitalization, Other)
  Sender: BAYER
  Company Number: CN-BAYER-2024A095790

PATIENT
  Age: 67 Year
  Sex: Male
  Weight: 55 kg

DRUGS (5)
  1. STIVARGA [Suspect]
     Active Substance: REGORAFENIB MONOHYDRATE
     Indication: Hepatic cancer
     Dosage: 80 MG, QD
     Route: 048
     Dates: start: 20240511, end: 20240623
  2. TISLELIZUMAB [Concomitant]
     Active Substance: TISLELIZUMAB
     Indication: Hepatic cancer
     Dosage: UNK, ONCE
     Dates: start: 20240511, end: 20240511
  3. TISLELIZUMAB [Concomitant]
     Active Substance: TISLELIZUMAB
     Indication: Hepatic cancer
     Dosage: UNK, ONCE
     Dates: start: 20240604, end: 20240604
  4. THIOTEPA [Concomitant]
     Active Substance: THIOTEPA
     Indication: Hepatic cancer
     Dosage: 30 MG, ONCE, ABDOMINAL CAVITY PERFUSION
     Route: 050
     Dates: start: 20240604, end: 20240604
  5. THIOTEPA [Concomitant]
     Active Substance: THIOTEPA
     Indication: Hepatic cancer
     Dosage: 30 MG, ONCE, ABDOMINAL CAVITY PERFUSION
     Route: 050
     Dates: start: 20240606, end: 20240606

REACTIONS (3)
  - Myelosuppression [Recovering/Resolving]
  - Full blood count decreased [Recovering/Resolving]
  - Off label use [None]

NARRATIVE: CASE EVENT DATE: 20240511
